FAERS Safety Report 8255101 (Version 2)
Quarter: 2013Q1

REPORT INFORMATION
  Report Type: Spontaneous
  Country: CA (occurrence: None)
  Receive Date: 20111114
  Receipt Date: 20130211
  Transmission Date: 20140127
  Serious: Yes (Death, Hospitalization, Other)
  Sender: FDA-Public Use
  Company Number: 2011AP002527

PATIENT
  Age: 61 Year
  Sex: Female

DRUGS (25)
  1. HALOPERIDOL [Suspect]
     Indication: PRODUCT USED FOR UNKNOWN INDICATION
     Dosage: 20 MG;HS
  2. QUETIAPINE FUMARATE [Suspect]
     Indication: PRODUCT USED FOR UNKNOWN INDICATION
     Dosage: 400 MG;HS
  3. RISPERIDONE (RISPERIDONE) [Suspect]
     Indication: PRODUCT USED FOR UNKNOWN INDICATION
     Dosage: 2 MG; AM
  4. DESIPRAMINE HYDROCHLORIDE [Concomitant]
  5. LORAZEPAM [Concomitant]
  6. PREDNISONE [Concomitant]
  7. BUDESONIDE [Concomitant]
  8. MOMETASONE FUROATE (MOMETASONE FUROATE) [Concomitant]
  9. FLUCONAZOLE [Concomitant]
  10. ALENDRONATE SODIUM [Concomitant]
  11. ATORVASTATIN (ATORVASTATIN) [Concomitant]
  12. CELECOXIB [Concomitant]
  13. CONJUGATED ESTROGENS (ESTROGENS CONJUGATED) [Concomitant]
  14. FUROSEMIDE (FUROSEMIDE) [Concomitant]
  15. HYDROXYZINE [Concomitant]
  16. LEVOTHYROXINE (LEVOTHYROXINE) [Concomitant]
  17. LOPERAMIDE (LOPERAMIDE) [Concomitant]
  18. OMEPRAZOLE (OMEPRAZOLE) [Concomitant]
  19. SUMATRIPTAN (SUMATRIPTAN) [Concomitant]
  20. SALBUTAMOL (SALBUTAMOL) [Concomitant]
  21. TRIMETHOPRIM SULFAMETHOXAZOLE (BACTRIM) [Concomitant]
  22. CYCLOBENZAPRINE (CYCLOBENZAPRINE) [Concomitant]
  23. HYDROXYCHLOROQUINE (HYDROXYCHLOROQUINE) [Concomitant]
  24. TRAZODONE (TRAZODONE) [Concomitant]
  25. VENLAFAXINE (VENLAFAXINE) [Concomitant]

REACTIONS (32)
  - Neuroleptic malignant syndrome [None]
  - Hypoxic-ischaemic encephalopathy [None]
  - Apallic syndrome [None]
  - Respiratory failure [None]
  - Fall [None]
  - Contusion [None]
  - Depressed level of consciousness [None]
  - Hypotension [None]
  - Livedo reticularis [None]
  - Peripheral coldness [None]
  - Tachyarrhythmia [None]
  - Tachypnoea [None]
  - Cyanosis [None]
  - Breath sounds abnormal [None]
  - Abdominal distension [None]
  - Metanephrine urine increased [None]
  - Normetanephrine urine increased [None]
  - 5-hydroxyindolacetic acid in urine decreased [None]
  - Catecholamines urine increased [None]
  - Haemoglobin increased [None]
  - Antipsychotic drug level increased [None]
  - Antidepressant drug level increased [None]
  - Septic shock [None]
  - Aspiration [None]
  - General physical health deterioration [None]
  - Rhabdomyolysis [None]
  - Electrolyte imbalance [None]
  - Renal failure [None]
  - Pain [None]
  - Anxiety [None]
  - Haemodynamic instability [None]
  - Mental status changes [None]
